FAERS Safety Report 9521342 (Version 1)
Quarter: 2013Q3

REPORT INFORMATION
  Report Type: Spontaneous
  Country: US (occurrence: None)
  Receive Date: 20130911
  Receipt Date: 20130911
  Transmission Date: 20140515
  Serious: Yes (Hospitalization, Other)
  Sender: FDA-Public Use
  Company Number: AEUSA201300014

PATIENT
  Age: 9 Year
  Sex: Male
  Weight: 26.8 kg

DRUGS (11)
  1. GAMUNEX-C (10 PCT) [Suspect]
     Indication: RENAL TRANSPLANT
     Route: 042
     Dates: start: 20120824
  2. CELLCEPT [Concomitant]
  3. PREDNISONE [Concomitant]
  4. PREVACID [Concomitant]
  5. MAGNESIUM OXIDE [Concomitant]
  6. POLYSACCHARIDE IRON [Concomitant]
  7. PRAVACHOL [Concomitant]
  8. PROGRAF [Concomitant]
  9. ACETAMINOPHEN [Concomitant]
  10. DIPHENHYDRAMINE [Concomitant]
  11. GAMMA GUARD [Concomitant]

REACTIONS (1)
  - Meningitis aseptic [None]
